FAERS Safety Report 9775153 (Version 2)
Quarter: 2015Q3

REPORT INFORMATION
  Report Type: Spontaneous
  Country: US (occurrence: US)
  Receive Date: 20131220
  Receipt Date: 20150721
  Transmission Date: 20151125
  Serious: No
  Sender: FDA-Public Use
  Company Number: US-GILEAD-2009-0023786

PATIENT
  Age: 4 Year
  Sex: Male

DRUGS (2)
  1. VISTIDE [Suspect]
     Active Substance: CIDOFOVIR
     Route: 042
  2. VISTIDE [Suspect]
     Active Substance: CIDOFOVIR
     Route: 042

REACTIONS (1)
  - Unevaluable event [Unknown]
